FAERS Safety Report 16060164 (Version 1)
Quarter: 2019Q1

REPORT INFORMATION
  Report Type: Spontaneous
  Country: JP (occurrence: JP)
  Receive Date: 20190312
  Receipt Date: 20190312
  Transmission Date: 20190418
  Serious: Yes (Hospitalization, Other)
  Sender: FDA-Public Use
  Company Number: JP-009507513-1903JPN000447J

PATIENT
  Age: 9 Decade
  Sex: Male

DRUGS (1)
  1. KEYTRUDA [Suspect]
     Active Substance: PEMBROLIZUMAB
     Indication: NON-SMALL CELL LUNG CANCER
     Dosage: 200 MILLIGRAM, Q3W
     Route: 041
     Dates: start: 20170714, end: 20170714

REACTIONS (4)
  - Malignant neoplasm progression [Unknown]
  - Pleural effusion [Unknown]
  - Type 1 diabetes mellitus [Unknown]
  - Oedema [Unknown]

NARRATIVE: CASE EVENT DATE: 201707
